FAERS Safety Report 4314028-3 (Version None)
Quarter: 2004Q1

REPORT INFORMATION
  Report Type: 
  Country: None (occurrence: None)
  Receive Date: 20040305
  Receipt Date: 20040224
  Transmission Date: 20041129
  Serious: Yes (Hospitalization)
  Sender: FDA-Public Use
  Company Number: FI-JNJFOC-20040205235

PATIENT
  Age: 49 Year
  Sex: Male

DRUGS (9)
  1. REMICADE [Suspect]
     Indication: ANKYLOSING SPONDYLITIS
     Dosage: 300 MG, 1 IN 8 WEEK, INTRAVENOUS
     Route: 042
     Dates: start: 20030815, end: 20030930
  2. ARAVA [Suspect]
     Indication: ANKYLOSING SPONDYLITIS
     Dosage: 20 MG, 1 IN 2 DAY, ORAL
     Route: 048
     Dates: start: 20030815, end: 20031125
  3. SOTALOL HCL [Concomitant]
  4. PREDNISOLONE [Concomitant]
  5. OXIKLORIN (HYDROXYCHLOROQUINE SULFATE) [Concomitant]
  6. PERSANTIN [Concomitant]
  7. RIVATRIL (CLONAZEPAM) [Concomitant]
  8. VIOXX [Concomitant]
  9. AMILORIDE HYDROCHLORIDE (AMILORIDE HYDROCHLORIDE) [Concomitant]

REACTIONS (2)
  - DRUG INTERACTION [None]
  - HEPATITIS [None]
